FAERS Safety Report 7669511-X (Version None)
Quarter: 2011Q3

REPORT INFORMATION
  Report Type: 
  Country: None (occurrence: None)
  Receive Date: 20110808
  Receipt Date: 20110801
  Transmission Date: 20111222
  Serious: Yes (Other)
  Sender: FDA-Public Use
  Company Number: ES-MERCK-1107ESP00005

PATIENT
  Age: 75 Year
  Sex: Female
  Weight: 73 kg

DRUGS (3)
  1. FLUTICASONE PROPIONATE [Concomitant]
     Indication: ASTHMA
     Route: 055
     Dates: start: 20080703
  2. FLUTICASONE PROPIONATE AND SALMETEROL XINAFOATE [Concomitant]
     Indication: ASTHMA
     Route: 055
     Dates: start: 20080731
  3. FOSAMAX [Suspect]
     Indication: OSTEOPOROSIS
     Route: 048
     Dates: start: 20021219, end: 20100401

REACTIONS (3)
  - MYALGIA [None]
  - BONE FISSURE [None]
  - FEMUR FRACTURE [None]
